FAERS Safety Report 5851214-5 (Version None)
Quarter: 2008Q3

REPORT INFORMATION
  Report Type: 
  Country: None (occurrence: None)
  Receive Date: 20080820
  Receipt Date: 20080811
  Transmission Date: 20090109
  Serious: Yes (Hospitalization)
  Sender: FDA-Public Use
  Company Number: US-JNJFOC-20080802945

PATIENT
  Sex: Female
  Weight: 90.72 kg

DRUGS (5)
  1. DURAGESIC-100 [Suspect]
     Route: 062
  2. DURAGESIC-100 [Suspect]
     Indication: PAIN
     Route: 062
  3. LOPRESSOR [Concomitant]
     Indication: BLOOD PRESSURE
     Dosage: HALF, TWO TIMES PER DAY, ONLY IF BLOOD PRESSURE GREATER THAN 100
     Route: 048
  4. PRILOSEC [Concomitant]
     Indication: ULCER
     Route: 048
  5. ZOCOR [Concomitant]
     Indication: BLOOD CHOLESTEROL ABNORMAL
     Route: 048

REACTIONS (15)
  - APPLICATION SITE IRRITATION [None]
  - GASTRIC ULCER PERFORATION [None]
  - HYPERSOMNIA [None]
  - HYPOTENSION [None]
  - MYOCARDIAL INFARCTION [None]
  - NEUROPATHY PERIPHERAL [None]
  - RENAL FAILURE [None]
  - RESPIRATORY ARREST [None]
  - SWELLING [None]
  - TYPE 2 DIABETES MELLITUS [None]
  - UTERINE LEIOMYOMA [None]
  - UTERINE PROLAPSE [None]
  - WEIGHT DECREASED [None]
  - WEIGHT INCREASED [None]
  - WRONG TECHNIQUE IN DRUG USAGE PROCESS [None]
